FAERS Safety Report 5775321-0 (Version None)
Quarter: 2008Q2

REPORT INFORMATION
  Report Type: 
  Country: None (occurrence: None)
  Receive Date: 20080616
  Receipt Date: 20080616
  Transmission Date: 20081010
  Serious: Yes (Other)
  Sender: FDA-Public Use
  Company Number: None

PATIENT
  Age: 82 Year
  Sex: Female
  Weight: 38.5557 kg

DRUGS (1)
  1. ARANESP [Suspect]
     Dosage: IM
     Route: 030

REACTIONS (2)
  - CONFUSIONAL STATE [None]
  - TREMOR [None]
